FAERS Safety Report 18318413 (Version 1)
Quarter: 2020Q3

REPORT INFORMATION
  Report Type: Spontaneous
  Country: US (occurrence: US)
  Receive Date: 20200928
  Receipt Date: 20200928
  Transmission Date: 20201103
  Serious: Yes (Hospitalization, Other)
  Sender: FDA-Public Use
  Company Number: US-HETERO-HET2020US01074

PATIENT
  Age: 68 Year
  Sex: Male

DRUGS (7)
  1. ASPIRIN. [Concomitant]
     Active Substance: ASPIRIN
     Indication: PRODUCT USED FOR UNKNOWN INDICATION
     Dosage: 81 MG, QD
     Route: 048
  2. METOPROLOL. [Concomitant]
     Active Substance: METOPROLOL
     Indication: PRODUCT USED FOR UNKNOWN INDICATION
     Dosage: 150 MG, QD
     Route: 048
  3. ACYCLOVIR. [Suspect]
     Active Substance: ACYCLOVIR
     Indication: ENCEPHALOPATHY
     Dosage: 800 MG, QD
     Route: 048
  4. ACYCLOVIR. [Suspect]
     Active Substance: ACYCLOVIR
     Dosage: 5 MG
     Route: 042
  5. NPH INSULIN [Concomitant]
     Active Substance: INSULIN BEEF
     Indication: PRODUCT USED FOR UNKNOWN INDICATION
     Dosage: 20 UNITS (REGULAR 70 TO 30%), BID
     Route: 065
  6. AMLODIPINE [Concomitant]
     Active Substance: AMLODIPINE BESYLATE
     Indication: PRODUCT USED FOR UNKNOWN INDICATION
     Dosage: 5 MG, QD
     Route: 048
  7. ACYCLOVIR. [Suspect]
     Active Substance: ACYCLOVIR
     Dosage: 200 MG, TID
     Route: 065

REACTIONS (2)
  - Incorrect dose administered [Unknown]
  - Neurotoxicity [Recovering/Resolving]
